FAERS Safety Report 5704367-3 (Version None)
Quarter: 2008Q2

REPORT INFORMATION
  Report Type: 
  Country: None (occurrence: None)
  Receive Date: 20080414
  Receipt Date: 20080404
  Transmission Date: 20081010
  Serious: Yes (Other)
  Sender: FDA-Public Use
  Company Number: A0706879A

PATIENT
  Age: 77 Year
  Sex: Female
  Weight: 58.2 kg

DRUGS (3)
  1. TYKERB [Suspect]
     Indication: BREAST CANCER
     Dosage: 1250MG PER DAY
     Route: 048
     Dates: start: 20070707, end: 20080305
  2. XELODA [Concomitant]
     Dosage: 2500MG PER DAY
     Route: 048
     Dates: start: 20070707, end: 20080130
  3. METFORMIN HCL [Concomitant]

REACTIONS (2)
  - HEPATIC ENZYME INCREASED [None]
  - TRANSAMINASES INCREASED [None]
